FAERS Safety Report 5175819-2 (Version None)
Quarter: 2006Q4

REPORT INFORMATION
  Report Type: 
  Country: None (occurrence: None)
  Receive Date: 20061215
  Receipt Date: 20060710
  Transmission Date: 20070319
  Serious: No
  Sender: FDA-Public Use
  Company Number: US-AMGEN-KDL185667

PATIENT
  Sex: Female

DRUGS (4)
  1. ENBREL [Suspect]
     Indication: RHEUMATOID ARTHRITIS
     Route: 058
     Dates: start: 20001101
  2. CELEXA [Concomitant]
  3. NAPROSYN [Concomitant]
  4. VITAMIN CAP [Concomitant]

REACTIONS (4)
  - FATIGUE [None]
  - INJECTION SITE REACTION [None]
  - OSTEOARTHRITIS [None]
  - PAIN IN EXTREMITY [None]
